FAERS Safety Report 13004945 (Version 1)
Quarter: 2016Q4

REPORT INFORMATION
  Report Type: Other
  Country: FR (occurrence: FR)
  Receive Date: 20161207
  Receipt Date: 20161207
  Transmission Date: 20170207
  Serious: Yes (Life-Threatening)
  Sender: FDA-Public Use
  Company Number: FR-LUPIN PHARMACEUTICALS INC.-2016-05377

PATIENT
  Age: 34 Year
  Sex: Male

DRUGS (6)
  1. TROPATEPINE [Interacting]
     Active Substance: TROPATEPINE
     Indication: BIPOLAR DISORDER
     Route: 065
     Dates: start: 20120605
  2. VALPROIC ACID. [Interacting]
     Active Substance: VALPROIC ACID
     Indication: PRODUCT USED FOR UNKNOWN INDICATION
     Route: 065
  3. RISPERIDONE. [Suspect]
     Active Substance: RISPERIDONE
     Indication: BIPOLAR DISORDER
     Route: 065
  4. QUETIAPINE. [Suspect]
     Active Substance: QUETIAPINE
     Indication: BIPOLAR DISORDER
     Dosage: 600 MG
     Route: 065
     Dates: start: 20120605
  5. LOXAPINE. [Interacting]
     Active Substance: LOXAPINE
     Indication: PRODUCT USED FOR UNKNOWN INDICATION
     Route: 065
     Dates: start: 20120614
  6. DIAZEPAM. [Interacting]
     Active Substance: DIAZEPAM
     Indication: PRODUCT USED FOR UNKNOWN INDICATION
     Route: 065

REACTIONS (6)
  - Drug interaction [Unknown]
  - Necrotising colitis [Unknown]
  - Large intestine perforation [Unknown]
  - Erectile dysfunction [Unknown]
  - Libido decreased [Unknown]
  - Ileus [Unknown]
